FAERS Safety Report 4623097-2 (Version None)
Quarter: 2005Q1

REPORT INFORMATION
  Report Type: 
  Country: None (occurrence: None)
  Receive Date: 20050328
  Receipt Date: 20050328
  Transmission Date: 20050727
  Serious: Yes (Other)
  Sender: FDA-Public Use
  Company Number: None

PATIENT
  Age: 58 Year
  Sex: Female
  Weight: 81.6475 kg

DRUGS (1)
  1. FLONASE [Suspect]
     Indication: RHINITIS
     Dosage: ONE SPRAY    EVERY 12 HOURS   NASAL
     Route: 045
     Dates: start: 20021110, end: 20050326

REACTIONS (3)
  - DEVICE FAILURE [None]
  - MEDICATION ERROR [None]
  - PHARMACEUTICAL PRODUCT COMPLAINT [None]
